FAERS Safety Report 6241743-7 (Version None)
Quarter: 2009Q2

REPORT INFORMATION
  Report Type: 
  Country: None (occurrence: None)
  Receive Date: 20090623
  Receipt Date: 20061121
  Transmission Date: 20091009
  Serious: Yes (Other)
  Sender: FDA-Public Use
  Company Number: ES-ROCHE-637020

PATIENT
  Age: 51 Year
  Sex: Female

DRUGS (3)
  1. INTERFERON ALFA-2A [Suspect]
     Indication: CHRONIC MYELOID LEUKAEMIA
     Dosage: ADMINISTERED IN WEEK 1
     Route: 065
     Dates: start: 19880101
  2. INTERFERON ALFA-2A [Suspect]
     Dosage: ADMINISTERED IN WEEK 2
     Route: 065
  3. INTERFERON ALFA-2A [Suspect]
     Dosage: ADMINISTERED FROM WEEK 3 ONWARDS
     Route: 065

REACTIONS (3)
  - CUTANEOUS SARCOIDOSIS [None]
  - FACIAL PALSY [None]
  - SICCA SYNDROME [None]
